FAERS Safety Report 17673760 (Version 2)
Quarter: 2020Q3

REPORT INFORMATION
  Report Type: Report from Study
  Country: None (occurrence: US)
  Receive Date: 20200416
  Receipt Date: 20200818
  Transmission Date: 20201102
  Serious: Yes (Other)
  Sender: FDA-Public Use
  Company Number: US-ABBVIE-20K-163-3364932-00

PATIENT
  Age: 76 Year
  Sex: Female
  Weight: 45.4 kg

DRUGS (3)
  1. SYNTHROID [Suspect]
     Active Substance: LEVOTHYROXINE SODIUM
     Indication: HYPOTHYROIDISM
     Dosage: 25 MICROGRAMS ON SUNDAY, TUESDAY, THURSDAY AND SATURDAY
     Route: 048
     Dates: start: 2016
  2. SYNTHROID [Suspect]
     Active Substance: LEVOTHYROXINE SODIUM
     Dosage: 50 MICROGRAMS ON MONDAY, WEDNESDAY, AND FRIDAY?TAKING 2 PILLS ON MONDAY AND FRIDAY
     Route: 048
  3. VITAMIN D [Concomitant]
     Active Substance: VITAMIN D NOS
     Indication: PRODUCT USED FOR UNKNOWN INDICATION

REACTIONS (1)
  - Lip and/or oral cavity cancer [Recovering/Resolving]

NARRATIVE: CASE EVENT DATE: 201907
